FAERS Safety Report 17002421 (Version 1)
Quarter: 2019Q4

REPORT INFORMATION
  Report Type: Spontaneous
  Country: US (occurrence: US)
  Receive Date: 20191107
  Receipt Date: 20191107
  Transmission Date: 20200122
  Serious: No
  Sender: FDA-Public Use
  Company Number: US-LUPIN PHARMACEUTICALS INC.-2019-05652

PATIENT
  Age: 16 Year
  Sex: Female

DRUGS (5)
  1. DULOXETINE. [Suspect]
     Active Substance: DULOXETINE
     Indication: DEPRESSION
     Dosage: 20 MILLIGRAM, QD
     Route: 065
  2. ESCITALOPRAM [Suspect]
     Active Substance: ESCITALOPRAM OXALATE
     Indication: DEPRESSION
     Dosage: 10 MILLIGRAM, QD
     Route: 065
  3. RISPERIDONE. [Suspect]
     Active Substance: RISPERIDONE
     Indication: PRODUCT USED FOR UNKNOWN INDICATION
     Dosage: UNK
     Route: 065
  4. DULOXETINE. [Suspect]
     Active Substance: DULOXETINE
     Dosage: 40 MILLIGRAM, QD
     Route: 065
  5. DULOXETINE. [Suspect]
     Active Substance: DULOXETINE
     Dosage: 20 MILLIGRAM, QD
     Route: 065

REACTIONS (2)
  - Blood prolactin increased [Recovered/Resolved]
  - Galactorrhoea [Recovered/Resolved]
